FAERS Safety Report 18846211 (Version 1)
Quarter: 2021Q1

REPORT INFORMATION
  Report Type: Report from Study
  Country: US (occurrence: US)
  Receive Date: 20210204
  Receipt Date: 20210204
  Transmission Date: 20210419
  Serious: Yes (Other)
  Sender: FDA-Public Use
  Company Number: US-ASTRAZENECA-2021A020334

PATIENT
  Age: 26779 Day
  Sex: Male
  Weight: 59.9 kg

DRUGS (12)
  1. DOCUSATE SODIUM. [Concomitant]
     Active Substance: DOCUSATE SODIUM
     Route: 065
  2. DOXAZOSIN [Concomitant]
     Active Substance: DOXAZOSIN MESYLATE
     Route: 065
  3. TRAMADOL. [Concomitant]
     Active Substance: TRAMADOL
     Route: 065
  4. FERRO?SEQUELS [Concomitant]
     Active Substance: DOCUSATE SODIUM\FERROUS FUMARATE
     Route: 065
  5. MULTIVITAMIN [Concomitant]
     Active Substance: VITAMINS
     Route: 065
  6. CARVEDILOL. [Concomitant]
     Active Substance: CARVEDILOL
     Route: 065
  7. ATORVASTATIN [Concomitant]
     Active Substance: ATORVASTATIN
     Route: 065
  8. LIDOCAINE. [Concomitant]
     Active Substance: LIDOCAINE
     Indication: ANALGESIC THERAPY
     Route: 065
  9. FENOFIBRATE. [Concomitant]
     Active Substance: FENOFIBRATE
     Route: 065
  10. CALQUENCE [Suspect]
     Active Substance: ACALABRUTINIB
     Indication: MANTLE CELL LYMPHOMA
     Route: 048
     Dates: start: 20210107
  11. AMLODIPINE [Concomitant]
     Active Substance: AMLODIPINE BESYLATE
     Route: 065
  12. HYDRALAZINE [Concomitant]
     Active Substance: HYDRALAZINE HYDROCHLORIDE
     Route: 065

REACTIONS (1)
  - Malignant neoplasm progression [Not Recovered/Not Resolved]

NARRATIVE: CASE EVENT DATE: 20210127
